FAERS Safety Report 5845722-0 (Version None)
Quarter: 2008Q3

REPORT INFORMATION
  Report Type: 
  Country: None (occurrence: None)
  Receive Date: 20080814
  Receipt Date: 20080806
  Transmission Date: 20090109
  Serious: Yes (Other)
  Sender: FDA-Public Use
  Company Number: PHHY2008GB17954

PATIENT
  Sex: Male

DRUGS (3)
  1. CLOZARIL [Suspect]
     Indication: SCHIZOPHRENIA
     Dosage: UNK
     Dates: start: 20020114
  2. CLOZARIL [Suspect]
     Dosage: 900 MG
     Dates: start: 20080601
  3. CLOZARIL [Suspect]
     Dosage: 700 MG

REACTIONS (2)
  - FALL [None]
  - MEMORY IMPAIRMENT [None]
